FAERS Safety Report 21812190 (Version 1)
Quarter: 2022Q4

REPORT INFORMATION
  Report Type: Spontaneous
  Country: US (occurrence: None)
  Receive Date: 20221230
  Receipt Date: 20221230
  Transmission Date: 20230113
  Serious: No
  Sender: FDA-Public Use
  Company Number: None

PATIENT
  Age: 82 Year
  Sex: Female
  Weight: 78.3 kg

DRUGS (5)
  1. MONOFERRIC [Suspect]
     Active Substance: FERRIC DERISOMALTOSE
     Indication: Blood iron decreased
     Dates: start: 20221227, end: 20221227
  2. LEVOTHYROXINE [Concomitant]
     Active Substance: LEVOTHYROXINE
  3. VITAMIN D3 [Concomitant]
     Active Substance: CHOLECALCIFEROL
  4. ZINC [Concomitant]
     Active Substance: ZINC
  5. Nettles [Concomitant]

REACTIONS (15)
  - Cough [None]
  - Body temperature increased [None]
  - Pulmonary pain [None]
  - Angina pectoris [None]
  - Neck pain [None]
  - Myocardial infarction [None]
  - Dyspnoea [None]
  - Nausea [None]
  - Headache [None]
  - Blood pressure increased [None]
  - Dry mouth [None]
  - Thirst [None]
  - Ear pain [None]
  - Fatigue [None]
  - Lethargy [None]

NARRATIVE: CASE EVENT DATE: 20221227
